FAERS Safety Report 4626886-3 (Version None)
Quarter: 2005Q2

REPORT INFORMATION
  Report Type: 
  Country: None (occurrence: None)
  Receive Date: 20050405
  Receipt Date: 20050325
  Transmission Date: 20051028
  Serious: Yes (Life-Threatening, Hospitalization)
  Sender: FDA-Public Use
  Company Number: JP-BRISTOL-MYERS SQUIBB COMPANY-12915880

PATIENT
  Age: 70 Year

DRUGS (1)
  1. GATIFLO TABS 100 MG [Suspect]
     Route: 048
     Dates: start: 20050320

REACTIONS (2)
  - COMA HEPATIC [None]
  - HEPATITIS FULMINANT [None]
